FAERS Safety Report 6549833-6 (Version None)
Quarter: 2010Q1

REPORT INFORMATION
  Report Type: 
  Country: None (occurrence: None)
  Receive Date: 20100119
  Receipt Date: 20100107
  Transmission Date: 20100710
  Serious: Yes (Life-Threatening, Hospitalization, Other)
  Sender: FDA-Public Use
  Company Number: 2009AL007293

PATIENT
  Age: 17 Year
  Sex: Male

DRUGS (4)
  1. LORAZEPAM [Suspect]
     Indication: ANXIETY
     Dosage: 1.5 MG;QD;PO
     Route: 048
     Dates: end: 20090625
  2. DEPAKOTE [Concomitant]
  3. RISPERIDONE [Concomitant]
  4. FLUOXETINE [Concomitant]

REACTIONS (11)
  - AGITATION [None]
  - APNOEA [None]
  - CARDIAC ARREST [None]
  - CONFUSIONAL STATE [None]
  - CONVULSION [None]
  - NEUTROPENIA [None]
  - NEUTROPHIL COUNT DECREASED [None]
  - RESTLESSNESS [None]
  - SEDATION [None]
  - STATUS EPILEPTICUS [None]
  - WITHDRAWAL SYNDROME [None]
